FAERS Safety Report 8415908-X (Version None)
Quarter: 2012Q2

REPORT INFORMATION
  Report Type: 
  Country: None (occurrence: None)
  Receive Date: 20120606
  Receipt Date: 20120524
  Transmission Date: 20120825
  Serious: No
  Sender: FDA-Public Use
  Company Number: JP-PFIZER INC-2010075574

PATIENT
  Sex: Female

DRUGS (5)
  1. SOMATROPIN [Suspect]
     Indication: SMALL FOR DATES BABY
     Dosage: 0.5 MG, 1X/DAY
     Route: 058
     Dates: start: 20090528
  2. SOMATROPIN [Suspect]
     Dosage: 1.0 MG, 1X/DAY
     Route: 058
     Dates: start: 20110310
  3. SOMATROPIN [Suspect]
     Dosage: 1.2 MG, 1X/DAY
     Route: 058
     Dates: start: 20100218
  4. SOMATROPIN [Suspect]
     Dosage: 1.3 MG, 1X/DAY
     Route: 058
     Dates: start: 20101021
  5. SOMATROPIN [Suspect]
     Dosage: 0.6 MG, 1X/DAY
     Route: 058
     Dates: start: 20091119

REACTIONS (1)
  - NO ADVERSE EVENT [None]
